FAERS Safety Report 6307050-9 (Version None)
Quarter: 2009Q3

REPORT INFORMATION
  Report Type: 
  Country: None (occurrence: None)
  Receive Date: 20090812
  Receipt Date: 20090603
  Transmission Date: 20100115
  Serious: Yes (Hospitalization)
  Sender: FDA-Public Use
  Company Number: FR-ABBOTT-09P-056-0571805-01

PATIENT
  Sex: Male
  Weight: 93 kg

DRUGS (7)
  1. HUMIRA [Suspect]
     Indication: RHEUMATOID ARTHRITIS
     Route: 058
     Dates: start: 20040604
  2. OFLOXACIN [Concomitant]
     Indication: URINARY TRACT INFECTION
     Dates: start: 20080601, end: 20080701
  3. LAMALINE [Concomitant]
     Indication: RHEUMATOID ARTHRITIS
     Dates: start: 20070501
  4. RENITEC [Concomitant]
     Indication: RENAL FAILURE
     Dates: start: 20000901
  5. KARDEGIC [Concomitant]
     Indication: ARTERITIS
     Dates: start: 20060703
  6. VERAPAMIL [Concomitant]
     Indication: DRUG USE FOR UNKNOWN INDICATION
     Dates: start: 20070501
  7. TAHOR [Concomitant]
     Indication: ARTERITIS
     Dates: start: 20060703

REACTIONS (7)
  - DIARRHOEA [None]
  - EXTRASYSTOLES [None]
  - HYPERTHERMIA [None]
  - PALPITATIONS [None]
  - PROSTATITIS [None]
  - PROSTATITIS ESCHERICHIA COLI [None]
  - WHITE BLOOD CELLS URINE POSITIVE [None]
